FAERS Safety Report 4824434-6 (Version None)
Quarter: 2005Q4

REPORT INFORMATION
  Report Type: 
  Country: None (occurrence: None)
  Receive Date: 20051108
  Receipt Date: 20051025
  Transmission Date: 20060501
  Serious: Yes (Hospitalization)
  Sender: FDA-Public Use
  Company Number: 2005BI006706

PATIENT
  Age: 44 Year
  Sex: Male
  Weight: 116.1208 kg

DRUGS (7)
  1. AVONEX [Suspect]
     Indication: MULTIPLE SCLEROSIS
     Dosage: 30 UG; QW; IM
     Route: 030
     Dates: start: 19960101, end: 20040101
  2. AVONEX [Suspect]
     Indication: MULTIPLE SCLEROSIS
     Dosage: 30 UG; QW; IM
     Route: 030
     Dates: start: 20040101
  3. ZOLOFT [Concomitant]
  4. REMERON [Concomitant]
  5. FLOMAX [Concomitant]
  6. BETHANECHOL [Concomitant]
  7. TRAMADOL HCL [Concomitant]

REACTIONS (6)
  - BLADDER SPASM [None]
  - BURNING SENSATION [None]
  - MUSCLE SPASTICITY [None]
  - OSTEOARTHRITIS [None]
  - PAIN [None]
  - SHOULDER ARTHROPLASTY [None]
